FAERS Safety Report 18736020 (Version 1)
Quarter: 2021Q1

REPORT INFORMATION
  Report Type: Spontaneous
  Country: US (occurrence: US)
  Receive Date: 20210108
  Receipt Date: 20210108
  Transmission Date: 20210419
  Serious: Yes (Hospitalization)
  Sender: FDA-Public Use
  Company Number: None

PATIENT
  Age: 68 Year
  Sex: Male
  Weight: 70 kg

DRUGS (1)
  1. ATORVASTATIN (ATORVASTATIN CA 80MG TAB) [Suspect]
     Active Substance: ATORVASTATIN
     Indication: HYPERLIPIDAEMIA
     Route: 048
     Dates: start: 20190125, end: 20200128

REACTIONS (11)
  - Rhabdomyolysis [None]
  - Necrotising myositis [None]
  - Dyspnoea [None]
  - Gastrointestinal disorder [None]
  - Oropharyngeal pain [None]
  - Malnutrition [None]
  - Disease complication [None]
  - Skin disorder [None]
  - Dysphagia [None]
  - Weight decreased [None]
  - Exercise tolerance decreased [None]

NARRATIVE: CASE EVENT DATE: 20200128
